FAERS Safety Report 4458246-2 (Version None)
Quarter: 2004Q3

REPORT INFORMATION
  Report Type: 
  Country: None (occurrence: None)
  Receive Date: 20040924
  Receipt Date: 20040913
  Transmission Date: 20050211
  Serious: Yes (Other)
  Sender: FDA-Public Use
  Company Number: US-BRISTOL-MYERS SQUIBB COMPANY-12700050

PATIENT
  Sex: Male
  Weight: 59 kg

DRUGS (4)
  1. VIDEX [Suspect]
     Indication: HIV INFECTION
     Dosage: ONCE DAILY
     Dates: end: 20040802
  2. OXANDRIN [Suspect]
     Indication: WEIGHT DECREASED
     Route: 048
     Dates: start: 20040615, end: 20040721
  3. MARINOL [Concomitant]
  4. NUTROPIN [Concomitant]

REACTIONS (2)
  - HYPERGLYCAEMIA [None]
  - PANCREATITIS [None]
